FAERS Safety Report 9307067 (Version 1)
Quarter: 2013Q2

REPORT INFORMATION
  Report Type: Spontaneous
  Country: CN (occurrence: CN)
  Receive Date: 20130523
  Receipt Date: 20130523
  Transmission Date: 20140414
  Serious: Yes (Other)
  Sender: FDA-Public Use
  Company Number: CN-ELI_LILLY_AND_COMPANY-CN201305005372

PATIENT
  Age: 37 Year
  Sex: Male
  Weight: 81 kg

DRUGS (3)
  1. HUMULIN REGULAR [Suspect]
     Indication: TYPE 2 DIABETES MELLITUS
     Dosage: 12 U, TID
     Route: 058
     Dates: start: 20120331, end: 20120401
  2. HUMULIN NPH [Suspect]
     Indication: TYPE 2 DIABETES MELLITUS
     Dosage: 6 U, QD
     Route: 058
     Dates: start: 20120331, end: 20120401
  3. COBAMAMIDE [Concomitant]
     Indication: DIABETIC COMPLICATION
     Dosage: 1 MG, QD
     Route: 030
     Dates: start: 20120331, end: 20120401

REACTIONS (1)
  - Rash pruritic [Recovered/Resolved]
